FAERS Safety Report 12647274 (Version 1)
Quarter: 2016Q3

REPORT INFORMATION
  Report Type: Spontaneous
  Country: US (occurrence: None)
  Receive Date: 20160811
  Receipt Date: 20160811
  Transmission Date: 20161109
  Serious: No
  Sender: FDA-Public Use
  Company Number: None

PATIENT
  Age: 28 Year
  Sex: Male
  Weight: 81.65 kg

DRUGS (6)
  1. IBUPROFEN. [Concomitant]
     Active Substance: IBUPROFEN
  2. NUCYNTA [Suspect]
     Active Substance: TAPENTADOL HYDROCHLORIDE
     Indication: PAIN MANAGEMENT
     Route: 048
     Dates: start: 20160215, end: 20160331
  3. ADHD MEDICATION [Concomitant]
  4. ZOLOFT [Concomitant]
     Active Substance: SERTRALINE HYDROCHLORIDE
  5. BUTRANS [Suspect]
     Active Substance: BUPRENORPHINE
     Indication: SPINAL OPERATION
     Dosage: 5 PATCHES  APPLIED AS MEDICATED PATCH TO SKIN
     Dates: start: 20160115, end: 20160328
  6. VALIUM [Concomitant]
     Active Substance: DIAZEPAM

REACTIONS (2)
  - Mental disorder [None]
  - Quality of life decreased [None]

NARRATIVE: CASE EVENT DATE: 20160215
